FAERS Safety Report 8091079-7 (Version None)
Quarter: 2012Q1

REPORT INFORMATION
  Report Type: 
  Country: None (occurrence: None)
  Receive Date: 20120129
  Receipt Date: 20111020
  Transmission Date: 20120608
  Serious: Yes (Other)
  Sender: FDA-Public Use
  Company Number: US-ABBOTT-11P-163-0867078-00

PATIENT
  Sex: Female
  Weight: 87.168 kg

DRUGS (3)
  1. VITAMIN D [Concomitant]
     Indication: PRODUCT USED FOR UNKNOWN INDICATION
  2. CALCIUM [Concomitant]
     Indication: PRODUCT USED FOR UNKNOWN INDICATION
  3. HUMIRA [Suspect]
     Indication: RHEUMATOID ARTHRITIS
     Route: 058
     Dates: start: 20090301

REACTIONS (5)
  - CHOLELITHIASIS [None]
  - URINARY TRACT INFECTION [None]
  - HYPERTENSION [None]
  - INJECTION SITE HAEMATOMA [None]
  - BLOOD URINE PRESENT [None]
